FAERS Safety Report 5911824-3 (Version None)
Quarter: 2008Q4

REPORT INFORMATION
  Report Type: 
  Country: None (occurrence: None)
  Receive Date: 20081003
  Receipt Date: 20080925
  Transmission Date: 20090506
  Serious: Yes (Death, Hospitalization)
  Sender: FDA-Public Use
  Company Number: 98690

PATIENT
  Age: 51 Year
  Sex: Female

DRUGS (2)
  1. ACETAMINOPHEN [Suspect]
     Indication: ASTHENIA
     Dosage: 500-1000 MG/QD/ORAL
     Route: 048
  2. IMATINIB MESYLATE [Suspect]
     Indication: CHRONIC MYELOID LEUKAEMIA
     Dosage: 400 MG/ QD/ ORAL
     Route: 048

REACTIONS (12)
  - ACUTE HEPATIC FAILURE [None]
  - CARDIAC ARREST [None]
  - ENCEPHALOPATHY [None]
  - GENERAL PHYSICAL HEALTH DETERIORATION [None]
  - HEPATITIS [None]
  - HEPATOTOXICITY [None]
  - HYPOTENSION [None]
  - IRON OVERLOAD [None]
  - METABOLIC ACIDOSIS [None]
  - MULTI-ORGAN FAILURE [None]
  - RESPIRATORY DISTRESS [None]
  - URINE OUTPUT DECREASED [None]
